FAERS Safety Report 15984770 (Version 1)
Quarter: 2019Q1

REPORT INFORMATION
  Report Type: Spontaneous
  Country: US (occurrence: US)
  Receive Date: 20190220
  Receipt Date: 20190220
  Transmission Date: 20190418
  Serious: Yes (Other)
  Sender: FDA-Public Use
  Company Number: US-BAYER-2019-035638

PATIENT
  Age: 48 Year
  Sex: Male

DRUGS (2)
  1. AMBRISENTAN [Suspect]
     Active Substance: AMBRISENTAN
     Indication: PULMONARY HYPERTENSION
     Dosage: 10 MG, QD
     Dates: start: 20141009
  2. ADEMPAS [Suspect]
     Active Substance: RIOCIGUAT
     Indication: PULMONARY HYPERTENSION
     Dosage: UNK

REACTIONS (5)
  - Fluid retention [None]
  - Respiratory tract infection [None]
  - Feeling abnormal [Not Recovered/Not Resolved]
  - Catheterisation cardiac abnormal [Not Recovered/Not Resolved]
  - Blood pressure decreased [None]
